FAERS Safety Report 16229648 (Version 1)
Quarter: 2019Q2

REPORT INFORMATION
  Report Type: Spontaneous
  Country: US (occurrence: US)
  Receive Date: 20190423
  Receipt Date: 20190423
  Transmission Date: 20190711
  Serious: No
  Sender: FDA-Public Use
  Company Number: US-BRACCO-2019US00168

PATIENT
  Sex: Male

DRUGS (1)
  1. READI-CAT 2 [Suspect]
     Active Substance: BARIUM SULFATE
     Indication: COMPUTERISED TOMOGRAM
     Dosage: UNK
     Route: 048
     Dates: start: 20190111, end: 20190111

REACTIONS (1)
  - Insomnia [Recovering/Resolving]

NARRATIVE: CASE EVENT DATE: 20190111
